FAERS Safety Report 17221927 (Version 2)
Quarter: 2021Q1

REPORT INFORMATION
  Report Type: Spontaneous
  Country: US (occurrence: US)
  Receive Date: 20200101
  Receipt Date: 20210219
  Transmission Date: 20210419
  Serious: Yes (Death, Other)
  Sender: FDA-Public Use
  Company Number: US-ASTRAZENECA-2019SF91852

PATIENT
  Age: 78 Year
  Sex: Male
  Weight: 82.1 kg

DRUGS (30)
  1. CYANOCOBALAMIN. [Concomitant]
     Active Substance: CYANOCOBALAMIN
  2. PEPCID [Concomitant]
     Active Substance: FAMOTIDINE
  3. GLIMEPIRIDE. [Concomitant]
     Active Substance: GLIMEPIRIDE
  4. PREDNISONE. [Concomitant]
     Active Substance: PREDNISONE
  5. LOSARTAN. [Concomitant]
     Active Substance: LOSARTAN
  6. TRICOR [Concomitant]
     Active Substance: FENOFIBRATE
  7. FAMCICLOVIR. [Concomitant]
     Active Substance: FAMCICLOVIR
  8. PRILOSEC OTC [Suspect]
     Active Substance: OMEPRAZOLE MAGNESIUM
     Indication: GASTROOESOPHAGEAL REFLUX DISEASE
     Route: 048
     Dates: start: 201101, end: 201701
  9. PROAIR HFA [Concomitant]
     Active Substance: ALBUTEROL SULFATE
     Indication: CHRONIC OBSTRUCTIVE PULMONARY DISEASE
     Dates: start: 200508, end: 201902
  10. AVELOX [Concomitant]
     Active Substance: MOXIFLOXACIN HYDROCHLORIDE
     Indication: PLAGUE SEPSIS
     Dates: start: 200612, end: 201902
  11. LIPITOR [Concomitant]
     Active Substance: ATORVASTATIN CALCIUM
  12. AZITHROMYCIN ANHYDROUS. [Concomitant]
     Active Substance: AZITHROMYCIN ANHYDROUS
  13. PROAIR HFA [Concomitant]
     Active Substance: ALBUTEROL SULFATE
     Indication: ASTHMA
     Dates: start: 200508, end: 201902
  14. CYMBALTA [Concomitant]
     Active Substance: DULOXETINE HYDROCHLORIDE
  15. AMLODIPINE [Concomitant]
     Active Substance: AMLODIPINE BESYLATE
  16. TAMSULOSIN [Concomitant]
     Active Substance: TAMSULOSIN
  17. XOPENEX [Concomitant]
     Active Substance: LEVALBUTEROL HYDROCHLORIDE
  18. PRILOSEC [Suspect]
     Active Substance: OMEPRAZOLE MAGNESIUM
     Route: 048
     Dates: start: 201101, end: 201701
  19. METFORMIN [Concomitant]
     Active Substance: METFORMIN HYDROCHLORIDE
     Indication: DIABETES MELLITUS
     Dates: start: 200511, end: 201902
  20. LYRICA [Concomitant]
     Active Substance: PREGABALIN
     Indication: DIABETES MELLITUS
     Dates: start: 200902, end: 201902
  21. SYMBICORT [Concomitant]
     Active Substance: BUDESONIDE\FORMOTEROL FUMARATE DIHYDRATE
  22. CLARITHROMYCIN. [Concomitant]
     Active Substance: CLARITHROMYCIN
  23. AMARYL [Concomitant]
     Active Substance: GLIMEPIRIDE
     Indication: DIABETES MELLITUS
     Dates: start: 200507, end: 200603
  24. AVODART [Concomitant]
     Active Substance: DUTASTERIDE
     Indication: BENIGN PROSTATIC HYPERPLASIA
     Dates: start: 200512, end: 200604
  25. CEFADROXIL. [Concomitant]
     Active Substance: CEFADROXIL
     Dates: start: 200509
  26. PRIMIDONE. [Concomitant]
     Active Substance: PRIMIDONE
  27. VOLTAREN [Concomitant]
     Active Substance: DICLOFENAC SODIUM
  28. LYRICA [Concomitant]
     Active Substance: PREGABALIN
     Indication: PAIN
     Dates: start: 200902, end: 201902
  29. CEPHALEXIN. [Concomitant]
     Active Substance: CEPHALEXIN
  30. VENTOLIN [Concomitant]
     Active Substance: ALBUTEROL SULFATE

REACTIONS (2)
  - Chronic kidney disease [Unknown]
  - Renal failure [Unknown]

NARRATIVE: CASE EVENT DATE: 2016
